FAERS Safety Report 21241094 (Version 1)
Quarter: 2022Q3

REPORT INFORMATION
  Report Type: Spontaneous
  Country: CA (occurrence: CA)
  Receive Date: 20220823
  Receipt Date: 20220823
  Transmission Date: 20221026
  Serious: Yes (Other)
  Sender: FDA-Public Use
  Company Number: CA-TEVA-2022-CA-2066163

PATIENT
  Age: 53 Year
  Sex: Male

DRUGS (9)
  1. ATORVASTATIN [Suspect]
     Active Substance: ATORVASTATIN
     Indication: Product used for unknown indication
     Dosage: 80 MILLIGRAM DAILY;
  2. BRILINTA [Concomitant]
     Active Substance: TICAGRELOR
     Indication: Product used for unknown indication
  3. MYLAN NITRO SUBLINGUAL SPRAY [Concomitant]
     Indication: Product used for unknown indication
     Route: 060
  4. PANTOPRAZOLE [Concomitant]
     Active Substance: PANTOPRAZOLE
     Indication: Product used for unknown indication
  5. PRO-AAS 80 CROQUABLE [Concomitant]
     Indication: Product used for unknown indication
  6. PRO-BISOPROLOL-5 [Concomitant]
     Indication: Product used for unknown indication
  7. RIVA-AMLODIPINE [Concomitant]
     Indication: Product used for unknown indication
  8. RIVA-PERINDOPRIL [Concomitant]
     Indication: Product used for unknown indication
  9. THRIVE LOZENGES 1MG [Concomitant]
     Indication: Product used for unknown indication

REACTIONS (1)
  - Rhabdomyolysis [Unknown]
